FAERS Safety Report 8290140-1 (Version None)
Quarter: 2012Q2

REPORT INFORMATION
  Report Type: 
  Country: None (occurrence: None)
  Receive Date: 20120412
  Receipt Date: 20120412
  Transmission Date: 20120825
  Serious: Yes (Life-Threatening, Hospitalization)
  Sender: FDA-Public Use
  Company Number: None

PATIENT
  Age: 81 Year
  Sex: Male
  Weight: 121.3 kg

DRUGS (1)
  1. VANCOMYCIN [Suspect]
     Indication: URINARY TRACT INFECTION
     Dosage: 2000 MG EVERY DAY IV
     Route: 042
     Dates: start: 20120324, end: 20120324

REACTIONS (12)
  - URTICARIA [None]
  - PRURITUS [None]
  - HYPOTENSION [None]
  - DYSPNOEA [None]
  - PRESYNCOPE [None]
  - INFUSION RELATED REACTION [None]
  - ANAPHYLACTIC REACTION [None]
  - SYNCOPE [None]
  - DIZZINESS [None]
  - ANGINA PECTORIS [None]
  - HYPERHIDROSIS [None]
  - CARDIO-RESPIRATORY ARREST [None]
